FAERS Safety Report 9442194 (Version 1)
Quarter: 2013Q3

REPORT INFORMATION
  Report Type: Spontaneous
  Country: US (occurrence: None)
  Receive Date: 20130805
  Receipt Date: 20130805
  Transmission Date: 20140515
  Serious: No
  Sender: FDA-Public Use
  Company Number: None

PATIENT
  Age: 43 Year
  Sex: Male
  Weight: 76.6 kg

DRUGS (6)
  1. CYCLOPHOSPHAMIDE [Suspect]
     Dates: start: 20130722
  2. DOXORUBICIN HYDROCHLORIDE [Suspect]
     Dates: start: 20130721
  3. ETOPOSIDE (VP-16) [Suspect]
     Dates: start: 20130721
  4. PREDNISONE [Suspect]
     Dates: start: 20130722
  5. RITUXIMAB (MOAB C2B8 ANTI CD20, CHIMERIC) [Suspect]
     Dates: start: 20130718
  6. VINCRISTINE SULFATE [Suspect]
     Dates: start: 20130721

REACTIONS (1)
  - Lymphocyte count decreased [None]
